FAERS Safety Report 13945499 (Version 1)
Quarter: 2017Q3

REPORT INFORMATION
  Report Type: Spontaneous
  Country: IT (occurrence: IT)
  Receive Date: 20170907
  Receipt Date: 20170907
  Transmission Date: 20171128
  Serious: Yes (Other)
  Sender: FDA-Public Use
  Company Number: IT-ELI_LILLY_AND_COMPANY-IT201709001193

PATIENT
  Age: 56 Year
  Sex: Female
  Weight: 84 kg

DRUGS (5)
  1. FLUOROURACIL. [Suspect]
     Active Substance: FLUOROURACIL
     Dosage: 4500 MG, UNKNOWN
     Route: 042
     Dates: start: 20161103
  2. ERBITUX [Suspect]
     Active Substance: CETUXIMAB
     Indication: RECTAL ADENOCARCINOMA
     Dosage: 480 MG, UNKNOWN
     Route: 042
     Dates: start: 20161103
  3. IRINOTECAN HYDROCHLORIDE TRIHYDRATE [Suspect]
     Active Substance: IRINOTECAN HYDROCHLORIDE
     Indication: RECTAL ADENOCARCINOMA
     Dosage: 340 MG, UNKNOWN
     Route: 042
     Dates: start: 20161103
  4. FLUOROURACIL. [Suspect]
     Active Substance: FLUOROURACIL
     Indication: RECTAL ADENOCARCINOMA
     Dosage: 760 MG, UNKNOWN
     Route: 040
     Dates: start: 20161103
  5. LEVOFOLINIC ACID [Concomitant]
     Active Substance: LEVOLEUCOVORIN
     Indication: RECTAL ADENOCARCINOMA
     Dosage: 380 MG, UNKNOWN
     Route: 065
     Dates: start: 20161103

REACTIONS (1)
  - Thrombocytopenia [Unknown]

NARRATIVE: CASE EVENT DATE: 20170215
